FAERS Safety Report 12247066 (Version 1)
Quarter: 2016Q2

REPORT INFORMATION
  Report Type: Spontaneous
  Country: IT (occurrence: IT)
  Receive Date: 20160407
  Receipt Date: 20160407
  Transmission Date: 20160815
  Serious: Yes (Life-Threatening)
  Sender: FDA-Public Use
  Company Number: IT-ASTRAZENECA-2016SE36590

PATIENT
  Age: 40 Year
  Sex: Male

DRUGS (1)
  1. SEROQUEL [Suspect]
     Active Substance: QUETIAPINE FUMARATE
     Route: 048
     Dates: start: 20151227, end: 20151227

REACTIONS (7)
  - Gastric disorder [Recovered/Resolved with Sequelae]
  - Miosis [Unknown]
  - Oxygen saturation decreased [Unknown]
  - Gastrointestinal obstruction [Unknown]
  - Sopor [Recovered/Resolved with Sequelae]
  - Toxicity to various agents [Recovered/Resolved with Sequelae]
  - Drug abuse [Unknown]

NARRATIVE: CASE EVENT DATE: 20151227
